FAERS Safety Report 4931240-0 (Version None)
Quarter: 2006Q1

REPORT INFORMATION
  Report Type: 
  Country: None (occurrence: None)
  Receive Date: 20060302
  Receipt Date: 20060116
  Transmission Date: 20060701
  Serious: Yes (Hospitalization, Other)
  Sender: FDA-Public Use
  Company Number: DE-MERCK-0601DEU00069

PATIENT
  Age: 64 Year
  Sex: Female

DRUGS (10)
  1. FOSAMAX [Suspect]
     Route: 048
     Dates: start: 20031113, end: 20040101
  2. MAGNESIUM OROTATE [Concomitant]
     Route: 065
  3. AMYLASE AND BROMELAINS AND CHYMOTRYPSIN AND LIPASE AND PANCREATIN AND [Concomitant]
     Route: 065
  4. CALCIUM (UNSPECIFIED) [Concomitant]
     Route: 048
  5. METOPROLOL SUCCINATE [Concomitant]
     Route: 048
  6. PYRIDOXINE HYDROCHLORIDE AND THIAMINE HYDROCHLORIDE [Concomitant]
     Route: 065
  7. ETILEFRINE [Concomitant]
     Route: 065
  8. ATORVASTATIN CALCIUM [Concomitant]
     Route: 065
  9. MEDICINALPRODUCT NOT SPECIFIED BY SENDER [Concomitant]
     Route: 065
  10. MEDICINALPRODUCT NOT SPECIFIED BY SENDER [Concomitant]
     Route: 065

REACTIONS (5)
  - NASAL TURBINATE HYPERTROPHY [None]
  - OSTEOMYELITIS [None]
  - OSTEONECROSIS [None]
  - RHINITIS [None]
  - SLEEP APNOEA SYNDROME [None]
